FAERS Safety Report 6960254-4 (Version None)
Quarter: 2010Q3

REPORT INFORMATION
  Report Type: 
  Country: None (occurrence: None)
  Receive Date: 20100901
  Receipt Date: 20100824
  Transmission Date: 20110219
  Serious: Yes (Other)
  Sender: FDA-Public Use
  Company Number: US-ELI_LILLY_AND_COMPANY-US201008007419

PATIENT
  Age: 65 Year
  Sex: Male

DRUGS (1)
  1. HUMALOG [Suspect]
     Indication: DIABETES MELLITUS

REACTIONS (11)
  - BENIGN PROSTATIC HYPERPLASIA [None]
  - BLOOD CHOLESTEROL INCREASED [None]
  - DIABETIC NEUROPATHY [None]
  - DRUG INEFFECTIVE [None]
  - ERECTILE DYSFUNCTION [None]
  - GASTROINTESTINAL DISORDER [None]
  - GASTROOESOPHAGEAL REFLUX DISEASE [None]
  - GENERALISED ANXIETY DISORDER [None]
  - HYPERTENSION [None]
  - OSTEOARTHRITIS [None]
  - VISUAL IMPAIRMENT [None]
